FAERS Safety Report 5049984-1 (Version None)
Quarter: 2006Q2

REPORT INFORMATION
  Report Type: 
  Country: None (occurrence: None)
  Receive Date: 20060614
  Receipt Date: 20060424
  Transmission Date: 20061013
  Serious: Yes (Other)
  Sender: FDA-Public Use
  Company Number: 445751

PATIENT
  Age: 79 Year
  Sex: Female

DRUGS (2)
  1. BONIVA [Suspect]
     Indication: OSTEOPOROSIS
     Dosage: 150 MG 1 PER MONTH ORAL
     Route: 048
     Dates: start: 20050615
  2. DICLOFENAC (DICLOFENAC) [Suspect]
     Indication: ARTHRITIS
     Dosage: 50 MG DAILY ORAL
     Route: 048
     Dates: start: 20050815, end: 20060410

REACTIONS (2)
  - STOMACH DISCOMFORT [None]
  - TRIGGER FINGER [None]
